FAERS Safety Report 5558021-1 (Version None)
Quarter: 2007Q4

REPORT INFORMATION
  Report Type: 
  Country: None (occurrence: None)
  Receive Date: 20071214
  Receipt Date: 20071127
  Transmission Date: 20080405
  Serious: Yes (Other)
  Sender: FDA-Public Use
  Company Number: IL-RANBAXY-2007US-11960

PATIENT

DRUGS (1)
  1. MINOCYCLINE HYDROCHLORIDE [Suspect]
     Indication: DRUG USE FOR UNKNOWN INDICATION
     Dosage: MEAN 100 MG (RANGE: 50-200)
     Route: 065

REACTIONS (2)
  - AUTOIMMUNE HEPATITIS [None]
  - TRANSAMINASES INCREASED [None]
